FAERS Safety Report 5579129-0 (Version None)
Quarter: 2008Q1

REPORT INFORMATION
  Report Type: 
  Country: None (occurrence: None)
  Receive Date: 20080102
  Receipt Date: 20071226
  Transmission Date: 20080703
  Serious: Yes (Other)
  Sender: FDA-Public Use
  Company Number: PHBS2007JP21258

PATIENT
  Sex: Male

DRUGS (5)
  1. COMTAN [Suspect]
     Indication: PARKINSON'S DISEASE
     Dosage: 500 MG/D
     Route: 048
     Dates: start: 20071001, end: 20071101
  2. COMTAN [Suspect]
     Dosage: 100 MG/D
     Route: 048
     Dates: start: 20071201, end: 20071201
  3. COMTAN [Suspect]
     Dosage: 200 MG/D
     Route: 048
     Dates: start: 20071201
  4. SYMMETREL [Suspect]
     Indication: PARKINSON'S DISEASE
     Route: 048
     Dates: start: 20071001, end: 20071101
  5. LEVODOPA BENSERAZIDE HYDROCHLO [Concomitant]
     Route: 065

REACTIONS (5)
  - ALANINE AMINOTRANSFERASE INCREASED [None]
  - ASPARTATE AMINOTRANSFERASE INCREASED [None]
  - BLOOD ALKALINE PHOSPHATASE INCREASED [None]
  - GAMMA-GLUTAMYLTRANSFERASE INCREASED [None]
  - HEPATIC FUNCTION ABNORMAL [None]
